FAERS Safety Report 23384076 (Version 1)
Quarter: 2024Q1

REPORT INFORMATION
  Report Type: Spontaneous
  Country: US (occurrence: None)
  Receive Date: 20240109
  Receipt Date: 20240109
  Transmission Date: 20240410
  Serious: Yes (Hospitalization)
  Sender: FDA-Public Use
  Company Number: None

PATIENT
  Age: 37 Year
  Sex: Female
  Weight: 82.6 kg

DRUGS (2)
  1. BELATACEPT [Suspect]
     Active Substance: BELATACEPT
     Indication: Renal transplant
  2. TACROLIMUS [Suspect]
     Active Substance: TACROLIMUS

REACTIONS (7)
  - Rhinovirus infection [None]
  - Acute kidney injury [None]
  - Therapy change [None]
  - Transplant rejection [None]
  - Bladder hypertrophy [None]
  - Urinary tract infection [None]
  - Pelvic pain [None]

NARRATIVE: CASE EVENT DATE: 20231205
